FAERS Safety Report 9373592 (Version 2)
Quarter: 2013Q2

REPORT INFORMATION
  Report Type: Spontaneous
  Country: BR (occurrence: BR)
  Receive Date: 20130627
  Receipt Date: 20130628
  Transmission Date: 20140414
  Serious: Yes (Other)
  Sender: FDA-Public Use
  Company Number: PHHY2013BR063587

PATIENT
  Sex: Male
  Weight: 39 kg

DRUGS (4)
  1. RITALINA [Suspect]
     Indication: ATTENTION DEFICIT/HYPERACTIVITY DISORDER
     Dosage: UNK UKN, UNK
  2. RITALINA [Suspect]
     Dosage: 2 DF, UNK
  3. VALPROIC ACID [Suspect]
     Indication: BIPOLAR DISORDER
     Dosage: 1 DF, (01 TABLET, DAILY)
     Route: 048
     Dates: start: 2011
  4. RISPERIDONE [Suspect]
     Indication: BIPOLAR DISORDER
     Dosage: 0.5 DF, BID (0.5 TABLET)
     Route: 048
     Dates: start: 2011

REACTIONS (6)
  - Impulsive behaviour [Not Recovered/Not Resolved]
  - Increased appetite [Not Recovered/Not Resolved]
  - Memory impairment [Not Recovered/Not Resolved]
  - Hypersomnia [Recovered/Resolved]
  - Energy increased [Not Recovered/Not Resolved]
  - Agitation [Not Recovered/Not Resolved]
